FAERS Safety Report 4819295-5 (Version None)
Quarter: 2005Q4

REPORT INFORMATION
  Report Type: 
  Country: None (occurrence: None)
  Receive Date: 20051103
  Receipt Date: 20050824
  Transmission Date: 20060501
  Serious: Yes (Other)
  Sender: FDA-Public Use
  Company Number: US-ROCHE-415353

PATIENT
  Age: 75 Year
  Sex: Female
  Weight: 74 kg

DRUGS (2)
  1. CAPECITABINE [Suspect]
     Indication: COLORECTAL CANCER
     Dosage: ADMINISTERED TWICE DAILY FOR 7 DAYS EVERY OTHER WEEK
     Route: 048
     Dates: start: 20050428
  2. BEVACIZUMAB [Suspect]
     Indication: COLORECTAL CANCER
     Route: 042
     Dates: start: 20050428, end: 20050809

REACTIONS (3)
  - HYPOAESTHESIA [None]
  - ILIAC ARTERY THROMBOSIS [None]
  - VISION BLURRED [None]
